FAERS Safety Report 16973763 (Version 2)
Quarter: 2020Q1

REPORT INFORMATION
  Report Type: Spontaneous
  Country: US (occurrence: US)
  Receive Date: 20191030
  Receipt Date: 20200103
  Transmission Date: 20200409
  Serious: No
  Sender: FDA-Public Use
  Company Number: US-PFIZER INC-2019465066

PATIENT
  Age: 73 Year
  Sex: Male
  Weight: 65.71 kg

DRUGS (2)
  1. ALTACE [Suspect]
     Active Substance: RAMIPRIL
     Indication: GLUTEN SENSITIVITY
  2. ALTACE [Suspect]
     Active Substance: RAMIPRIL
     Indication: HYPERTENSION
     Dosage: 5 MG, DAILY
     Route: 048

REACTIONS (4)
  - Reaction to excipient [Not Recovered/Not Resolved]
  - Abdominal pain upper [Not Recovered/Not Resolved]
  - Pruritus [Recovered/Resolved]
  - Gastrointestinal disorder [Not Recovered/Not Resolved]
